FAERS Safety Report 6217077-3 (Version None)
Quarter: 2009Q2

REPORT INFORMATION
  Report Type: 
  Country: None (occurrence: None)
  Receive Date: 20090606
  Receipt Date: 20090526
  Transmission Date: 20091009
  Serious: Yes (Hospitalization, Other)
  Sender: FDA-Public Use
  Company Number: AU-PFIZER INC-2008073072

PATIENT
  Age: 30 Year

DRUGS (12)
  1. BLINDED *PLACEBO [Suspect]
     Indication: COLORECTAL CANCER
     Dosage: 37.5 MG, 1X/DAY
     Route: 048
     Dates: start: 20080213
  2. BLINDED SUNITINIB MALATE [Suspect]
     Indication: COLORECTAL CANCER
     Dosage: 37.5 MG, 1X/DAY
     Route: 048
     Dates: start: 20080213
  3. IRINOTECAN HYDROCHLORIDE [Suspect]
     Indication: COLORECTAL CANCER
     Dosage: 270 MG, EVERY 2 WEEKS
     Route: 042
     Dates: start: 20080213
  4. FLUOROURACIL [Suspect]
     Indication: COLORECTAL CANCER
     Dosage: 600 MG, EVERY 2 WEEKS
     Route: 042
     Dates: start: 20080213
  5. FLUOROURACIL [Suspect]
     Dosage: 3575 MG, EVERY 2 WEEKS
     Route: 042
     Dates: start: 20080213
  6. CALCIUM FOLINATE [Suspect]
     Indication: COLORECTAL CANCER
     Dosage: 300 MG, EVERY 2 WEEKS
     Route: 042
     Dates: start: 20080213
  7. OXYNORM [Concomitant]
     Dosage: 10 MG, UNK
     Dates: start: 20080730
  8. MERSYNDOL [Concomitant]
     Dates: start: 20080714
  9. PRAMIN [Concomitant]
     Dates: start: 20080213
  10. DEXAMETHASONE [Concomitant]
     Dates: start: 20080214
  11. GRANISETRON HCL [Concomitant]
     Dates: start: 20080214
  12. CENTRUM [Concomitant]
     Dates: start: 20080616

REACTIONS (2)
  - HYDRONEPHROSIS [None]
  - INTESTINAL OBSTRUCTION [None]
